FAERS Safety Report 13196518 (Version 5)
Quarter: 2017Q1

REPORT INFORMATION
  Report Type: Spontaneous
  Country: US (occurrence: US)
  Receive Date: 20170208
  Receipt Date: 20170331
  Transmission Date: 20170428
  Serious: Yes (Life-Threatening, Other)
  Sender: FDA-Public Use
  Company Number: US-VIFOR (INTERNATIONAL) INC.-VIT-2017-01208

PATIENT
  Age: 51 Year
  Sex: Male
  Weight: 89.5 kg

DRUGS (6)
  1. VENOFER [Suspect]
     Active Substance: IRON SUCROSE
     Indication: TRANSFERRIN SATURATION
  2. HECTOROL [Concomitant]
     Active Substance: DOXERCALCIFEROL
     Route: 040
  3. VENOFER [Suspect]
     Active Substance: IRON SUCROSE
     Indication: BLOOD IRON ABNORMAL
  4. HEPARIN [Concomitant]
     Active Substance: HEPARIN SODIUM
  5. VENOFER [Suspect]
     Active Substance: IRON SUCROSE
     Indication: HAEMOGLOBIN ABNORMAL
     Route: 040
     Dates: start: 20170112, end: 20170202
  6. MIRCERA [Suspect]
     Active Substance: METHOXY POLYETHYLENE GLYCOL-EPOETIN BETA
     Indication: NEPHROGENIC ANAEMIA
     Route: 040
     Dates: start: 20160421, end: 20170124

REACTIONS (12)
  - Dyspnoea [Recovered/Resolved]
  - Loss of consciousness [Recovered/Resolved]
  - Erythema [Recovered/Resolved]
  - Unresponsive to stimuli [Recovered/Resolved]
  - Respiratory distress [Recovered/Resolved]
  - Posturing [Recovered/Resolved]
  - Flushing [Recovered/Resolved]
  - Oxygen saturation decreased [Recovered/Resolved]
  - Respiratory arrest [Recovered/Resolved]
  - Tremor [Recovered/Resolved]
  - Heart rate increased [Recovered/Resolved]
  - Tachycardia [Recovered/Resolved]

NARRATIVE: CASE EVENT DATE: 20170124
